FAERS Safety Report 8306085-4 (Version None)
Quarter: 2012Q2

REPORT INFORMATION
  Report Type: 
  Country: None (occurrence: None)
  Receive Date: 20120423
  Receipt Date: 20120417
  Transmission Date: 20120825
  Serious: No
  Sender: FDA-Public Use
  Company Number: US-BAYER-2012-039101

PATIENT
  Age: 75 Year
  Sex: Female
  Weight: 77 kg

DRUGS (2)
  1. ALEVE (CAPLET) [Suspect]
     Dosage: 2 TABLETS TWICE DAILY - 130 COUNT
     Route: 048
     Dates: start: 20120101, end: 20120201
  2. HYDROCHLOROTHIAZIDE [Concomitant]

REACTIONS (1)
  - SOMNOLENCE [None]
